FAERS Safety Report 21034626 (Version 2)
Quarter: 2022Q3

REPORT INFORMATION
  Report Type: Spontaneous
  Country: US (occurrence: US)
  Receive Date: 20220701
  Receipt Date: 20220801
  Transmission Date: 20221027
  Serious: No
  Sender: FDA-Public Use
  Company Number: US-BRISTOL-MYERS SQUIBB COMPANY-2022-066372

PATIENT
  Age: 50 Year
  Sex: Male

DRUGS (2)
  1. REVLIMID [Suspect]
     Active Substance: LENALIDOMIDE
     Indication: Hodgkin^s disease
     Dosage: FREQ:  EVERY DAY FOR 3 WEEKS ON AND 1 WEEK OFF
     Route: 048
  2. REVLIMID [Suspect]
     Active Substance: LENALIDOMIDE
     Dosage: 1 DF : 1 CAPSULE?ONCE DAILY FOR 3 WEEKS ON, 1 WEEK OFF
     Route: 048
     Dates: start: 20220319

REACTIONS (2)
  - Adverse event [Unknown]
  - Diarrhoea [Recovered/Resolved]
